FAERS Safety Report 12721743 (Version 1)
Quarter: 2016Q3

REPORT INFORMATION
  Report Type: Spontaneous
  Country: None (occurrence: US)
  Receive Date: 20160902
  Receipt Date: 20160902
  Transmission Date: 20161109
  Serious: Yes (Other)
  Sender: FDA-Public Use
  Company Number: None

PATIENT
  Age: 44 Year
  Sex: Female
  Weight: 58.97 kg

DRUGS (1)
  1. BUPROPRION [Suspect]
     Active Substance: BUPROPION

REACTIONS (2)
  - Drug effect decreased [None]
  - Product substitution issue [None]
